FAERS Safety Report 4990773-1 (Version None)
Quarter: 2006Q2

REPORT INFORMATION
  Report Type: 
  Country: None (occurrence: None)
  Receive Date: 20060503
  Receipt Date: 20060428
  Transmission Date: 20061013
  Serious: Yes (Hospitalization, Other)
  Sender: FDA-Public Use
  Company Number: JP-BOEHRINGER INGELHEIM PHARMACEUTICALS, INC.-2006-BP-04931NB

PATIENT
  Age: 71 Year
  Sex: Female

DRUGS (3)
  1. MOBIC [Suspect]
     Indication: ARTHRALGIA
     Route: 048
     Dates: start: 20060329
  2. ARIMIDEX [Concomitant]
     Route: 048
  3. KELNAC [Concomitant]
     Route: 048

REACTIONS (1)
  - NEUTROPENIA [None]
